FAERS Safety Report 13380761 (Version 1)
Quarter: 2017Q1

REPORT INFORMATION
  Report Type: Spontaneous
  Country: US (occurrence: US)
  Receive Date: 20170328
  Receipt Date: 20170328
  Transmission Date: 20170429
  Serious: Yes (Hospitalization, Disabling)
  Sender: FDA-Public Use
  Company Number: None

PATIENT
  Age: 62 Year
  Sex: Female

DRUGS (10)
  1. BREO ELLIPTA [Concomitant]
     Active Substance: FLUTICASONE FUROATE\VILANTEROL TRIFENATATE
  2. VITAMIN D3 [Concomitant]
     Active Substance: CHOLECALCIFEROL
  3. BABY ASPIRIN [Concomitant]
     Active Substance: ASPIRIN
  4. PROAIR HFA [Concomitant]
     Active Substance: ALBUTEROL SULFATE
  5. FISH OIL [Concomitant]
     Active Substance: FISH OIL
  6. COQ10 [Concomitant]
     Active Substance: UBIDECARENONE
  7. PROBIOTICS [Concomitant]
     Active Substance: PROBIOTICS NOS
  8. CIPRO [Suspect]
     Active Substance: CIPROFLOXACIN HYDROCHLORIDE
     Indication: DIVERTICULITIS
     Route: 042
     Dates: start: 20160920, end: 20160921
  9. MONTELUCAST [Concomitant]
     Active Substance: MONTELUKAST SODIUM
  10. PRESERVISION [Concomitant]
     Active Substance: MINERALS\VITAMINS

REACTIONS (6)
  - Cognitive disorder [None]
  - Gait disturbance [None]
  - Nerve injury [None]
  - Pain [None]
  - Impaired work ability [None]
  - Muscular weakness [None]

NARRATIVE: CASE EVENT DATE: 20160920
